FAERS Safety Report 13883596 (Version 1)
Quarter: 2017Q3

REPORT INFORMATION
  Report Type: Spontaneous
  Country: US (occurrence: US)
  Receive Date: 20170819
  Receipt Date: 20170819
  Transmission Date: 20171127
  Serious: No
  Sender: FDA-Public Use
  Company Number: US-CELGENEUS-USA-20170804421

PATIENT
  Sex: Male

DRUGS (3)
  1. OTEZLA [Suspect]
     Active Substance: APREMILAST
     Indication: OFF LABEL USE
  2. OTEZLA [Suspect]
     Active Substance: APREMILAST
     Indication: RHEUMATIC HEART DISEASE
     Dosage: 60 MILLIGRAM
     Route: 048
     Dates: start: 201607
  3. OTEZLA [Suspect]
     Active Substance: APREMILAST
     Indication: RHEUMATOID ARTHRITIS

REACTIONS (1)
  - Herpes zoster [Unknown]
